FAERS Safety Report 21548410 (Version 1)
Quarter: 2022Q4

REPORT INFORMATION
  Report Type: Spontaneous
  Country: DE (occurrence: DE)
  Receive Date: 20221103
  Receipt Date: 20221103
  Transmission Date: 20230113
  Serious: Yes (Death, Life-Threatening, Other)
  Sender: FDA-Public Use
  Company Number: None

PATIENT
  Age: 72 Year
  Sex: Male
  Weight: 140 kg

DRUGS (2)
  1. EDOXABAN TOSYLATE [Suspect]
     Active Substance: EDOXABAN TOSYLATE
     Indication: Cardioversion
     Dosage: 60 MG, QD
     Route: 048
     Dates: start: 20210708
  2. EDOXABAN TOSYLATE [Suspect]
     Active Substance: EDOXABAN TOSYLATE
     Indication: Atrial fibrillation

REACTIONS (11)
  - Dysarthria [Unknown]
  - Brain oedema [Fatal]
  - Disturbance in attention [Unknown]
  - Hypertensive crisis [Fatal]
  - Hemiparesis [Unknown]
  - Cerebral mass effect [Fatal]
  - Extensor plantar response [Unknown]
  - Somnolence [Unknown]
  - Intraventricular haemorrhage [Fatal]
  - Cerebral haemorrhage [Fatal]
  - Product use in unapproved indication [Unknown]

NARRATIVE: CASE EVENT DATE: 20210708
